FAERS Safety Report 9059425 (Version 1)
Quarter: 2013Q1

REPORT INFORMATION
  Report Type: Spontaneous
  Country: IN (occurrence: IN)
  Receive Date: 20130211
  Receipt Date: 20130211
  Transmission Date: 20140127
  Serious: Yes (Death)
  Sender: FDA-Public Use
  Company Number: IN-BRISTOL-MYERS SQUIBB COMPANY-17342676

PATIENT
  Age: 62 Year
  Sex: Male

DRUGS (1)
  1. BARACLUDE TABS 0.5 MG [Suspect]
     Dates: start: 20111208, end: 20120725

REACTIONS (1)
  - Death [Fatal]
